FAERS Safety Report 9498872 (Version 1)
Quarter: 2013Q3

REPORT INFORMATION
  Report Type: Spontaneous
  Country: SE (occurrence: SE)
  Receive Date: 20130904
  Receipt Date: 20130904
  Transmission Date: 20140515
  Serious: Yes (Hospitalization, Other)
  Sender: FDA-Public Use
  Company Number: SE-ASTRAZENECA-2013SE65994

PATIENT
  Age: 67 Year
  Sex: Male

DRUGS (1)
  1. CRESTOR [Suspect]
     Route: 048
     Dates: start: 201208

REACTIONS (5)
  - Gastrointestinal carcinoma [Not Recovered/Not Resolved]
  - Melaena [Not Recovered/Not Resolved]
  - Haemoglobin decreased [Unknown]
  - Tachycardia [Unknown]
  - Tachypnoea [Unknown]
